FAERS Safety Report 7883561-X (Version None)
Quarter: 2011Q4

REPORT INFORMATION
  Report Type: 
  Country: None (occurrence: None)
  Receive Date: 20111102
  Receipt Date: 20111021
  Transmission Date: 20120403
  Serious: Yes (Hospitalization, Other)
  Sender: FDA-Public Use
  Company Number: US-BAYER-2011-050350

PATIENT
  Age: 17 Year
  Sex: Female
  Weight: 74.83 kg

DRUGS (5)
  1. NAPROXEN [Concomitant]
     Dosage: 250 MG, UNK
     Dates: start: 20090624
  2. NSAID'S [Concomitant]
  3. CIMETIDINE [Concomitant]
     Dosage: 800 MG, UNK
     Dates: start: 20090608
  4. YAZ [Suspect]
     Dosage: UNK
     Dates: start: 20090501, end: 20090701
  5. PROMETHAZINE [Concomitant]
     Dosage: 25 MG, UNK
     Dates: start: 20090606

REACTIONS (4)
  - INJURY [None]
  - CHOLECYSTITIS CHRONIC [None]
  - PAIN [None]
  - CHOLELITHIASIS [None]
